FAERS Safety Report 19293247 (Version 2)
Quarter: 2021Q3

REPORT INFORMATION
  Report Type: Spontaneous
  Country: CH (occurrence: CH)
  Receive Date: 20210524
  Receipt Date: 20210706
  Transmission Date: 20211014
  Serious: Yes (Death, Other)
  Sender: FDA-Public Use
  Company Number: CH-ASTELLAS-2021US018234

PATIENT
  Age: 60 Year
  Sex: Male

DRUGS (1)
  1. XOSPATA [Suspect]
     Active Substance: GILTERITINIB
     Indication: PRODUCT USED FOR UNKNOWN INDICATION
     Dosage: 3 DF, ONCE DAILY (3?0?0)
     Route: 065
     Dates: start: 20210225

REACTIONS (1)
  - Neoplasm malignant [Fatal]
